FAERS Safety Report 7415352-8 (Version None)
Quarter: 2011Q2

REPORT INFORMATION
  Report Type: 
  Country: None (occurrence: None)
  Receive Date: 20110414
  Receipt Date: 20110413
  Transmission Date: 20111010
  Serious: Yes (Other)
  Sender: FDA-Public Use
  Company Number: A0920081A

PATIENT
  Age: 81 Year
  Sex: Male

DRUGS (19)
  1. LANTUS [Concomitant]
  2. GLUCOTROL [Concomitant]
  3. MAGNESIUM [Concomitant]
  4. LISINOPRIL [Concomitant]
  5. ZINC [Concomitant]
  6. HYDROCHLOROTHIAZIDE [Concomitant]
  7. FISH OIL [Concomitant]
  8. VITAMIN B1 TAB [Concomitant]
  9. VITAMIN B [Concomitant]
  10. ESTER C [Concomitant]
  11. ADVAIR HFA [Concomitant]
  12. BYETTA [Concomitant]
  13. ANTACID TAB [Concomitant]
  14. SPIRIVA [Concomitant]
  15. ACTOS [Concomitant]
  16. ZOCOR [Concomitant]
  17. UNKNOWN MEDICATION [Concomitant]
  18. SARNA SENSITIVE LOTION [Suspect]
     Indication: DRY SKIN
     Dosage: 1APP SINGLE DOSE
     Route: 061
     Dates: start: 20110317, end: 20110317
  19. ASPIRIN [Concomitant]

REACTIONS (4)
  - APPLICATION SITE URTICARIA [None]
  - ANAPHYLACTIC REACTION [None]
  - DYSPNOEA [None]
  - DRUG INEFFECTIVE [None]
